FAERS Safety Report 15368971 (Version 3)
Quarter: 2018Q4

REPORT INFORMATION
  Report Type: Spontaneous
  Country: JP (occurrence: JP)
  Receive Date: 20180911
  Receipt Date: 20181003
  Transmission Date: 20190204
  Serious: Yes (Other)
  Sender: FDA-Public Use
  Company Number: JP-ROCHE-2182639

PATIENT
  Age: 68 Year
  Sex: Male

DRUGS (3)
  1. TACROLIMUS HYDRATE [Concomitant]
     Active Substance: TACROLIMUS
     Dosage: DOSE INTERVAL UNCERTAINTY
     Route: 048
  2. PREDNISOLONE. [Concomitant]
     Active Substance: PREDNISOLONE
     Dosage: DOSE INTERVAL UNCERTAINTY
     Route: 065
  3. CELLCEPT [Suspect]
     Active Substance: MYCOPHENOLATE MOFETIL\MYCOPHENOLATE MOFETIL HYDROCHLORIDE
     Indication: PRODUCT USED FOR UNKNOWN INDICATION
     Route: 048

REACTIONS (3)
  - Organising pneumonia [Recovering/Resolving]
  - Thrombotic microangiopathy [Unknown]
  - Cytomegalovirus chorioretinitis [Unknown]
